FAERS Safety Report 15982304 (Version 2)
Quarter: 2019Q1

REPORT INFORMATION
  Report Type: Spontaneous
  Country: ES (occurrence: ES)
  Receive Date: 20190219
  Receipt Date: 20190225
  Transmission Date: 20190418
  Serious: Yes (Hospitalization, Other)
  Sender: FDA-Public Use
  Company Number: ES-ALLERGAN-1904295US

PATIENT
  Age: 33 Year
  Sex: Female

DRUGS (6)
  1. LORMETAZEPAM [Suspect]
     Active Substance: LORMETAZEPAM
     Indication: DEPRESSION
     Dosage: 2 MG, QD
     Route: 065
     Dates: start: 2017
  2. CITALOPRAM HYDROBROMIDE - BP [Suspect]
     Active Substance: CITALOPRAM HYDROBROMIDE
     Dosage: 30 MG, QD
     Route: 065
     Dates: start: 2017
  3. DIAZEPAM. [Suspect]
     Active Substance: DIAZEPAM
     Indication: DEPRESSION
     Dosage: UNK UNK, QD
     Route: 065
  4. DIAZEPAM. [Suspect]
     Active Substance: DIAZEPAM
     Indication: FIBROMYALGIA
     Dosage: 10 MG, TID
     Route: 065
     Dates: start: 2017
  5. LORMETAZEPAM [Suspect]
     Active Substance: LORMETAZEPAM
     Indication: FIBROMYALGIA
     Dosage: UNK UNK, QD
     Route: 065
  6. CITALOPRAM HYDROBROMIDE - BP [Suspect]
     Active Substance: CITALOPRAM HYDROBROMIDE
     Indication: DEPRESSION
     Dosage: UNK
     Route: 065

REACTIONS (8)
  - Insomnia [Unknown]
  - Photophobia [Unknown]
  - Hyperhidrosis [Unknown]
  - Anxiety [Unknown]
  - Influenza like illness [Unknown]
  - Palpitations [Unknown]
  - Paraesthesia [Unknown]
  - Irritability [Unknown]
